FAERS Safety Report 5060530-9 (Version None)
Quarter: 2006Q2

REPORT INFORMATION
  Report Type: 
  Country: None (occurrence: None)
  Receive Date: 20060630
  Receipt Date: 20060214
  Transmission Date: 20061013
  Serious: Yes (Other)
  Sender: FDA-Public Use
  Company Number: VISP-PR-0602S-0077

PATIENT
  Age: 43 Year
  Sex: Male

DRUGS (7)
  1. VISIPAQUE [Suspect]
     Indication: CHEST PAIN
     Dosage: 95 ML, SINGLE DOSE, I.V.
     Route: 042
     Dates: start: 20060125, end: 20060125
  2. PREDNISONE [Concomitant]
  3. DIPHENHYDRAMINE HCL [Concomitant]
  4. DIOVAN [Concomitant]
  5. FENOFIBRATE (LOFIBRA) [Concomitant]
  6. ERYTHROMYCIN [Concomitant]
  7. PRILOSEC [Concomitant]

REACTIONS (1)
  - HYPERSENSITIVITY [None]
